FAERS Safety Report 8019851-X (Version None)
Quarter: 2012Q1

REPORT INFORMATION
  Report Type: 
  Country: None (occurrence: None)
  Receive Date: 20120103
  Receipt Date: 20111227
  Transmission Date: 20120608
  Serious: Yes (Death)
  Sender: FDA-Public Use
  Company Number: US-PFIZER INC-2011309098

PATIENT
  Sex: Male

DRUGS (3)
  1. LYRICA [Concomitant]
     Dosage: 40 MG, UNK
  2. LIPITOR [Suspect]
     Dosage: UNK
  3. PROTONIX [Suspect]
     Dosage: 40 MG, UNK

REACTIONS (1)
  - DEATH [None]
